FAERS Safety Report 22048124 (Version 1)
Quarter: 2023Q1

REPORT INFORMATION
  Report Type: Report from Study
  Country: IT (occurrence: IT)
  Receive Date: 20230301
  Receipt Date: 20230301
  Transmission Date: 20230417
  Serious: Yes (Hospitalization, Other)
  Sender: FDA-Public Use
  Company Number: None

PATIENT
  Age: 71 Year
  Sex: Female
  Weight: 46 kg

DRUGS (2)
  1. PACLITAXEL [Suspect]
     Active Substance: PACLITAXEL
     Indication: Fallopian tube cancer metastatic
     Dosage: DOSAGE: 200, UNIT OF MEASURE: MILLIGRAMS, FREQUENCY OF ADMINISTRATION: CYCLIC, ROUTE OF ADMINISTRATI
     Route: 042
     Dates: start: 20220620
  2. CARBOPLATIN [Suspect]
     Active Substance: CARBOPLATIN
     Indication: Fallopian tube cancer metastatic
     Dosage: DOSAGE: 300, UNIT OF MEASURE: MILLIGRAMS, FREQUENCY OF ADMINISTRATION: CYCLIC, ROUTE OF ADMINISTRATI
     Route: 042
     Dates: start: 20220620

REACTIONS (1)
  - Pancytopenia [Recovered/Resolved]

NARRATIVE: CASE EVENT DATE: 20220813
